FAERS Safety Report 12548670 (Version 1)
Quarter: 2016Q3

REPORT INFORMATION
  Report Type: Spontaneous
  Country: US (occurrence: US)
  Receive Date: 20160712
  Receipt Date: 20160712
  Transmission Date: 20161109
  Serious: No
  Sender: FDA-Public Use
  Company Number: US-TEVA-655259USA

PATIENT
  Sex: Female
  Weight: 59.93 kg

DRUGS (1)
  1. LAMOTRIGINE. [Suspect]
     Active Substance: LAMOTRIGINE
     Indication: AFFECTIVE DISORDER
     Dosage: RECENTLY INCREASED TO 200MG
     Route: 065

REACTIONS (1)
  - Drug screen false positive [Unknown]
